FAERS Safety Report 5241452-7 (Version None)
Quarter: 2007Q1

REPORT INFORMATION
  Report Type: 
  Country: None (occurrence: None)
  Receive Date: 20070220
  Receipt Date: 20070213
  Transmission Date: 20070707
  Serious: Yes (Other)
  Sender: FDA-Public Use
  Company Number: US-AVENTIS-200710938US

PATIENT
  Sex: Female

DRUGS (13)
  1. LOVENOX [Suspect]
     Dates: start: 20050701
  2. BUMEX [Concomitant]
     Dosage: DOSE: UNK
  3. CLONAZEPAM [Concomitant]
     Dosage: DOSE: UNK
  4. CYMBALTA [Concomitant]
  5. DEXAMETHASONE [Concomitant]
  6. GABAPENTIN [Concomitant]
  7. VICODIN [Concomitant]
     Dosage: DOSE: UNK
  8. IRON [Concomitant]
  9. LEVOTHYROXINE SODIUM [Concomitant]
  10. LUNESTA [Concomitant]
     Dosage: DOSE: UNK
  11. NEXIUM [Concomitant]
     Dosage: DOSE: UNK
  12. NOVOLOG [Concomitant]
     Dosage: DOSE: UNK
  13. POTASSIUM ACETATE [Concomitant]

REACTIONS (6)
  - ACTIVITIES OF DAILY LIVING IMPAIRED [None]
  - DYSPNOEA [None]
  - OEDEMA PERIPHERAL [None]
  - PULMONARY FIBROSIS [None]
  - RASH MACULAR [None]
  - WEIGHT INCREASED [None]
